FAERS Safety Report 6473559-0 (Version None)
Quarter: 2009Q4

REPORT INFORMATION
  Report Type: 
  Country: None (occurrence: None)
  Receive Date: 20091204
  Receipt Date: 20081110
  Transmission Date: 20100525
  Serious: Yes (Other)
  Sender: FDA-Public Use
  Company Number: FR-ELI_LILLY_AND_COMPANY-FR200810000909

PATIENT
  Age: 61 Year
  Sex: Female

DRUGS (5)
  1. CYMBALTA [Suspect]
     Indication: DEPRESSION
     Dosage: 60 MG, DAILY (1/D)
     Route: 048
     Dates: start: 20080318, end: 20080401
  2. TETRAZEPAM [Concomitant]
     Indication: BACK PAIN
  3. PROPOFAN [Concomitant]
     Indication: BACK PAIN
     Dosage: 3 D/F, DAILY (1/D)
     Route: 048
  4. TOPALGIC [Concomitant]
     Indication: BACK PAIN
     Dosage: 150 MG, DAILY (1/D)
     Route: 048
  5. RIVOTRIL [Concomitant]
     Indication: BACK PAIN
     Dosage: 3 MG, DAILY (1/D)
     Route: 048

REACTIONS (1)
  - HEPATOCELLULAR INJURY [None]
